FAERS Safety Report 26128850 (Version 1)
Quarter: 2025Q4

REPORT INFORMATION
  Report Type: Spontaneous
  Country: AE (occurrence: AE)
  Receive Date: 20251208
  Receipt Date: 20251208
  Transmission Date: 20260117
  Serious: Yes (Other)
  Sender: Steriscience PTE
  Company Number: AE-STERISCIENCE B.V.-2025-ST-001662

PATIENT
  Age: 32 Year
  Sex: Male

DRUGS (13)
  1. VANCOMYCIN [Interacting]
     Active Substance: VANCOMYCIN
     Indication: Evidence based treatment
     Dosage: UNK
     Route: 065
  2. MEROPENEM [Interacting]
     Active Substance: MEROPENEM
     Indication: Psoas abscess
     Dosage: 1 GRAM, Q8H
     Route: 042
  3. MEROPENEM [Interacting]
     Active Substance: MEROPENEM
     Indication: Salmonellosis
  4. ERTAPENEM SODIUM [Interacting]
     Active Substance: ERTAPENEM SODIUM
     Indication: Psoas abscess
     Dosage: 1 GRAM, OD
     Route: 042
  5. ERTAPENEM SODIUM [Interacting]
     Active Substance: ERTAPENEM SODIUM
     Indication: Salmonellosis
     Dosage: UNK
     Route: 065
  6. DOLUTEGRAVIR [Interacting]
     Active Substance: DOLUTEGRAVIR
     Indication: HIV infection
     Dosage: UNK
     Route: 065
  7. EMTRICITABINE [Interacting]
     Active Substance: EMTRICITABINE
     Indication: HIV infection
     Dosage: UNK
     Route: 065
  8. TENOFOVIR [Interacting]
     Active Substance: TENOFOVIR
     Indication: HIV infection
     Dosage: UNK
     Route: 065
  9. RIFAMPIN [Interacting]
     Active Substance: RIFAMPIN
     Indication: Mycobacterial infection
     Dosage: UNK
     Route: 065
  10. ETHAMBUTOL [Interacting]
     Active Substance: ETHAMBUTOL HYDROCHLORIDE
     Indication: Mycobacterial infection
     Dosage: UNK
     Route: 065
  11. MOXIFLOXACIN [Interacting]
     Active Substance: MOXIFLOXACIN
     Indication: Mycobacterial infection
     Dosage: UNK
     Route: 065
  12. AZITHROMYCIN [Interacting]
     Active Substance: AZITHROMYCIN
     Indication: Psoas abscess
     Dosage: UNK
     Route: 065
  13. AZITHROMYCIN [Interacting]
     Active Substance: AZITHROMYCIN
     Indication: Salmonellosis

REACTIONS (1)
  - Drug interaction [Unknown]
